FAERS Safety Report 5224538-2 (Version None)
Quarter: 2007Q1

REPORT INFORMATION
  Report Type: 
  Country: None (occurrence: None)
  Receive Date: 20070130
  Receipt Date: 20070119
  Transmission Date: 20070707
  Serious: Yes (Other)
  Sender: FDA-Public Use
  Company Number: JP-PFIZER INC-2007006255

PATIENT
  Age: 73 Year
  Sex: Male

DRUGS (6)
  1. DETRUSITOL [Suspect]
     Indication: HYPERTONIC BLADDER
     Dosage: DAILY DOSE:4MG
     Route: 048
     Dates: start: 20060712, end: 20060714
  2. DIACORT [Concomitant]
  3. TAMSULOSIN HCL [Concomitant]
     Route: 048
  4. VASOLAN [Concomitant]
     Route: 048
  5. ALMATOL [Concomitant]
     Route: 048
  6. LANIRAPID [Concomitant]
     Route: 048

REACTIONS (1)
  - URINARY RETENTION [None]
